FAERS Safety Report 23302733 (Version 1)
Quarter: 2023Q4

REPORT INFORMATION
  Report Type: Spontaneous
  Country: US (occurrence: None)
  Receive Date: 20231215
  Receipt Date: 20231215
  Transmission Date: 20240109
  Serious: Yes (Death, Hospitalization)
  Sender: FDA-Public Use
  Company Number: 2023A285264

PATIENT
  Age: 66 Year
  Sex: Female

DRUGS (6)
  1. QUETIAPINE [Suspect]
     Active Substance: QUETIAPINE
     Route: 048
  2. NORTRIPTYLINE [Suspect]
     Active Substance: NORTRIPTYLINE
  3. OLANZAPINE [Suspect]
     Active Substance: OLANZAPINE
  4. METHADONE [Suspect]
     Active Substance: METHADONE HYDROCHLORIDE
  5. GABAPENTIN [Suspect]
     Active Substance: GABAPENTIN
  6. CLONAZEPAM [Suspect]
     Active Substance: CLONAZEPAM

REACTIONS (2)
  - Toxicity to various agents [Fatal]
  - Completed suicide [Fatal]
